FAERS Safety Report 7658940-6 (Version None)
Quarter: 2011Q3

REPORT INFORMATION
  Report Type: 
  Country: None (occurrence: None)
  Receive Date: 20110805
  Receipt Date: 20110802
  Transmission Date: 20111222
  Serious: Yes (Other)
  Sender: FDA-Public Use
  Company Number: FR-PFIZER INC-2011175808

PATIENT
  Age: 73 Year
  Sex: Female

DRUGS (1)
  1. ALDACTONE [Suspect]

REACTIONS (4)
  - VIITH NERVE PARALYSIS [None]
  - HEADACHE [None]
  - COUGH [None]
  - PRODUCT TASTE ABNORMAL [None]
